FAERS Safety Report 16879095 (Version 5)
Quarter: 2020Q1

REPORT INFORMATION
  Report Type: Spontaneous
  Country: JP (occurrence: JP)
  Receive Date: 20191003
  Receipt Date: 20200121
  Transmission Date: 20200409
  Serious: Yes (Hospitalization, Other)
  Sender: FDA-Public Use
  Company Number: JP-AMGEN-JPNSP2019161029

PATIENT
  Age: 79 Year
  Sex: Female

DRUGS (12)
  1. COMELIAN [Concomitant]
     Active Substance: DILAZEP
     Dosage: 50 MILLIGRAM, TID
  2. FEBURIC [Concomitant]
     Active Substance: FEBUXOSTAT
     Dosage: 20 MILLIGRAM, QD (IN MORNING)
  3. TRAMCET [Concomitant]
     Active Substance: ACETAMINOPHEN\TRAMADOL
     Dosage: 1 DOSAGE FORM, TID
  4. DENOTAS [Concomitant]
     Active Substance: CALCIUM CARBONATE\CHOLECALCIFEROL\MAGNESIUM CARBONATE
     Indication: HYPOCALCAEMIA
     Dosage: UNK
     Route: 065
     Dates: start: 20190508, end: 20190522
  5. LASIX [Concomitant]
     Active Substance: FUROSEMIDE
     Dosage: 40 MG IN MORNING 20 MG AT NOON TWICE DAILY (BID)
  6. LYRICA [Concomitant]
     Active Substance: PREGABALIN
     Dosage: 25 MG IN MORNING 50 MG IN EVENING, BID
  7. VITAMINS NOS [Concomitant]
     Active Substance: VITAMINS
     Dosage: 5 MILLIGRAM, TID
  8. ALDACTONE-A [Concomitant]
     Active Substance: SPIRONOLACTONE
     Dosage: 50 MILLIGRAM, QD (ONCE DAILYIN MORNING)
  9. EVENITY [Suspect]
     Active Substance: ROMOSOZUMAB-AQQG
     Indication: OSTEOPOROSIS
     Dosage: 210 MILLIGRAM
     Route: 058
     Dates: start: 20190410, end: 20190522
  10. THYRADIN-S [Concomitant]
     Active Substance: LEVOTHYROXINE
     Dosage: 100 MICROGRAM, QD (ONCE DAILY MORNING)
  11. CALONAL [Concomitant]
     Active Substance: ACETAMINOPHEN
     Dosage: 400 MILLIGRAM, TID
  12. MAGMITT [Concomitant]
     Active Substance: MAGNESIUM OXIDE
     Dosage: 500 MILLIGRAM, TID

REACTIONS (3)
  - Decreased appetite [Recovering/Resolving]
  - Hypocalcaemia [Unknown]
  - Physical deconditioning [Unknown]

NARRATIVE: CASE EVENT DATE: 20190508
